FAERS Safety Report 5241438-2 (Version None)
Quarter: 2007Q1

REPORT INFORMATION
  Report Type: 
  Country: None (occurrence: None)
  Receive Date: 20070220
  Receipt Date: 20070209
  Transmission Date: 20070707
  Serious: Yes (Hospitalization, Disabling)
  Sender: FDA-Public Use
  Company Number: FR-AVENTIS-200314682FR

PATIENT
  Age: 55 Year
  Sex: Female

DRUGS (5)
  1. KETEK [Suspect]
     Indication: SINUSITIS
     Route: 048
     Dates: start: 20030826, end: 20030903
  2. COAPROVEL [Suspect]
     Indication: HYPERTENSION
     Route: 048
     Dates: end: 20031027
  3. FLUDEX                             /00340101/ [Concomitant]
     Indication: HYPERTENSION
  4. TAREG [Concomitant]
     Indication: HYPERTENSION
  5. LOXEN [Concomitant]
     Indication: HYPERTENSION
     Dates: start: 20031027

REACTIONS (5)
  - ASTHENIA [None]
  - DIPLOPIA [None]
  - EYELID PTOSIS [None]
  - FATIGUE [None]
  - MYASTHENIA GRAVIS [None]
